FAERS Safety Report 7789798-2 (Version None)
Quarter: 2011Q3

REPORT INFORMATION
  Report Type: 
  Country: None (occurrence: None)
  Receive Date: 20110930
  Receipt Date: 20100813
  Transmission Date: 20111222
  Serious: No
  Sender: FDA-Public Use
  Company Number: US-ASTRAZENECA-2010SE35923

PATIENT
  Sex: Female

DRUGS (1)
  1. ARIMIDEX [Suspect]
     Route: 048
     Dates: start: 20060101

REACTIONS (4)
  - PYREXIA [None]
  - DEAFNESS UNILATERAL [None]
  - EAR PAIN [None]
  - MIDDLE EAR EFFUSION [None]
